FAERS Safety Report 10821388 (Version 2)
Quarter: 2015Q1

REPORT INFORMATION
  Report Type: Spontaneous
  Country: US (occurrence: None)
  Receive Date: 20150213
  Receipt Date: 20150220
  Transmission Date: 20150721
  Serious: Yes (Other)
  Sender: FDA-Public Use
  Company Number: 201502073

PATIENT
  Age: 27 Year
  Sex: Male
  Weight: 75.3 kg

DRUGS (1)
  1. TESTOPEL [Suspect]
     Active Substance: TESTOSTERONE
     Indication: PRODUCT USED FOR UNKNOWN INDICATION
     Route: 058
     Dates: start: 2013, end: 2013

REACTIONS (6)
  - Implant site pain [None]
  - Implant site rash [None]
  - Implant site swelling [None]
  - Pelvic pain [None]
  - Implant site erythema [None]
  - Implant site inflammation [None]

NARRATIVE: CASE EVENT DATE: 2013
